FAERS Safety Report 8042224-0 (Version None)
Quarter: 2012Q1

REPORT INFORMATION
  Report Type: 
  Country: None (occurrence: None)
  Receive Date: 20120112
  Receipt Date: 20120105
  Transmission Date: 20120608
  Serious: No
  Sender: FDA-Public Use
  Company Number: US-B.I. PHARMACEUTICALS,INC./RIDGEFIELD-2011-BP-28363BP

PATIENT
  Sex: Female

DRUGS (16)
  1. SPIRIVA [Suspect]
     Indication: EMPHYSEMA
  2. NEURONTIN [Concomitant]
     Indication: PAIN
     Dosage: 400 MG
     Route: 048
  3. PREMARIN [Concomitant]
     Indication: BLOOD OESTROGEN ABNORMAL
     Dosage: 0.625 MG
     Route: 048
  4. ADVAIR DISKUS 100/50 [Concomitant]
  5. TRAMADOL HCL [Concomitant]
     Indication: PAIN
     Dosage: 150 MG
     Route: 048
  6. PROBIOTIC [Concomitant]
     Route: 048
  7. SPIRIVA [Suspect]
     Indication: ASTHMA
  8. MOBIC [Concomitant]
     Indication: ARTHRITIS
     Dosage: 10 MG
     Route: 048
  9. NEXIUM [Concomitant]
     Indication: DYSPEPSIA
     Dosage: 40 MG
     Route: 048
  10. ALBUTEROL [Concomitant]
  11. LAXATIVE [Concomitant]
  12. WELLBUTRIN XL [Concomitant]
     Indication: DEPRESSION
     Dosage: 300 MG
     Route: 048
  13. STOOL SOFTENER [Concomitant]
     Indication: CONSTIPATION
     Route: 048
  14. SPIRIVA [Suspect]
     Indication: CHRONIC OBSTRUCTIVE PULMONARY DISEASE
     Dosage: 18 MCG
     Route: 055
     Dates: start: 20081201
  15. ZYRTEC-D 12 HOUR [Concomitant]
     Indication: SEASONAL ALLERGY
     Dosage: 20 MG
     Route: 048
  16. MULTI-VITAMIN [Concomitant]
     Indication: SUPPLEMENTATION THERAPY
     Route: 048

REACTIONS (1)
  - CATARACT [None]
